FAERS Safety Report 19583552 (Version 1)
Quarter: 2021Q3

REPORT INFORMATION
  Report Type: Spontaneous
  Country: US (occurrence: US)
  Receive Date: 20210720
  Receipt Date: 20210720
  Transmission Date: 20211014
  Serious: Yes (Life-Threatening)
  Sender: FDA-Public Use
  Company Number: None

PATIENT
  Age: 11 Year
  Sex: Female
  Weight: 42.3 kg

DRUGS (4)
  1. CHILDREN^S PEPCID [Concomitant]
  2. KIDS MULTI VITAMINS WITH FLUORIDE [Concomitant]
  3. NEUTROGENA ULTRA SHEER BODY MIST SUNSCREEN BROAD SPECTRUM SPF 100 PLUS [Suspect]
     Active Substance: AVOBENZONE\HOMOSALATE\OCTISALATE\OCTOCRYLENE\OXYBENZONE
     Indication: PROPHYLAXIS AGAINST SOLAR RADIATION
     Dosage: ?          OTHER STRENGTH:SUNSCREEN AEROSOL;QUANTITY:1 SPRAY(S);OTHER FREQUENCY:EVERY 2 HRS;?
     Route: 061
     Dates: start: 20210703, end: 20210704
  4. CHILDREN^S PROBIOTICS [Concomitant]

REACTIONS (3)
  - Skin disorder [None]
  - Drug hypersensitivity [None]
  - Allergy to arthropod bite [None]

NARRATIVE: CASE EVENT DATE: 20210704
